FAERS Safety Report 19375924 (Version 2)
Quarter: 2021Q3

REPORT INFORMATION
  Report Type: Spontaneous
  Country: US (occurrence: US)
  Receive Date: 20210604
  Receipt Date: 20210706
  Transmission Date: 20211014
  Serious: No
  Sender: FDA-Public Use
  Company Number: US-SA-2021SA184145

PATIENT
  Age: 77 Year
  Sex: Female

DRUGS (2)
  1. AMLODIPINE [Concomitant]
     Active Substance: AMLODIPINE BESYLATE
     Dosage: UNK
  2. DUPIXENT [Suspect]
     Active Substance: DUPILUMAB
     Indication: DERMATITIS ATOPIC
     Dosage: 300 MG, QOW
     Route: 058
     Dates: start: 20210209

REACTIONS (8)
  - Condition aggravated [Unknown]
  - Joint swelling [Unknown]
  - Anal incontinence [Unknown]
  - Stress [Unknown]
  - Irritable bowel syndrome [Unknown]
  - Oral herpes [Unknown]
  - Eructation [Unknown]
  - Flatulence [Unknown]

NARRATIVE: CASE EVENT DATE: 202104
